FAERS Safety Report 10143000 (Version 1)
Quarter: 2014Q2

REPORT INFORMATION
  Report Type: Report from Study
  Country: CA (occurrence: CA)
  Receive Date: 20140430
  Receipt Date: 20140430
  Transmission Date: 20141212
  Serious: Yes (Life-Threatening, Hospitalization)
  Sender: FDA-Public Use
  Company Number: CA-JNJFOC-20140418094

PATIENT
  Age: 67 Year
  Sex: Female

DRUGS (12)
  1. REMICADE [Suspect]
     Indication: CROHN^S DISEASE
     Route: 042
     Dates: start: 20120104
  2. CO-ENZYME Q10 [Concomitant]
     Route: 065
  3. LIPITOR [Concomitant]
     Route: 065
  4. COVERSYL [Concomitant]
     Route: 065
  5. PLAVIX [Concomitant]
     Route: 065
  6. FOSAMAX [Concomitant]
     Route: 065
  7. CARVEDILOL [Concomitant]
     Route: 065
  8. VITAMIN D W/ CALCIUM [Concomitant]
     Route: 065
  9. VITAMIN B12 [Concomitant]
     Route: 065
  10. IRON [Concomitant]
     Route: 065
  11. LASIX [Concomitant]
     Route: 065
  12. PANTOLOC [Concomitant]
     Route: 065

REACTIONS (3)
  - Myocardial infarction [Unknown]
  - Obstruction [Unknown]
  - Cardiac valve disease [Unknown]
